FAERS Safety Report 14987513 (Version 1)
Quarter: 2018Q2

REPORT INFORMATION
  Report Type: Spontaneous
  Country: US (occurrence: US)
  Receive Date: 20180518
  Receipt Date: 20180518
  Transmission Date: 20180711
  Serious: No
  Sender: FDA-Public Use
  Company Number: None

PATIENT
  Age: 42 Year
  Sex: Male
  Weight: 135 kg

DRUGS (6)
  1. LYRICA [Concomitant]
     Active Substance: PREGABALIN
  2. IBUPROFEN. [Concomitant]
     Active Substance: IBUPROFEN
  3. DEXTROAMPHET SACCHARAT, AMPHET ASPARTATE, DEXTROAMPHET SULFATE AND AMPHET SULFAT [Suspect]
     Active Substance: AMPHETAMINE ASPARTATE\AMPHETAMINE SULFATE\DEXTROAMPHETAMINE SACCHARATE\DEXTROAMPHETAMINE SULFATE
     Indication: ATTENTION DEFICIT/HYPERACTIVITY DISORDER
     Dosage: ?          QUANTITY:1 TABLET(S);?
     Route: 048
     Dates: start: 20180507, end: 20180517
  4. MIRAPAX [Concomitant]
  5. METFORMIN [Concomitant]
     Active Substance: METFORMIN HYDROCHLORIDE
  6. LIPITOR [Concomitant]
     Active Substance: ATORVASTATIN CALCIUM

REACTIONS (8)
  - Product quality issue [None]
  - Product substitution issue [None]
  - Gastric disorder [None]
  - Suspected counterfeit product [None]
  - Product solubility abnormal [None]
  - Headache [None]
  - Drug effect decreased [None]
  - Anger [None]

NARRATIVE: CASE EVENT DATE: 20180514
